FAERS Safety Report 8809533 (Version 2)
Quarter: 2012Q4

REPORT INFORMATION
  Report Type: 
  Country: NL (occurrence: NL)
  Receive Date: 20120926
  Receipt Date: 20121114
  Transmission Date: 20130627
  Serious: Yes (Hospitalization)
  Sender: FDA-Public Use
  Company Number: NL-PFIZER INC-2012233506

PATIENT
  Age: 58 Year
  Sex: Female
  Weight: 78.1 kg

DRUGS (9)
  1. GENOTROPIN [Suspect]
     Dosage: 0.4 mg, 1x/day, 7inj/wk
     Dates: start: 19961016, end: 20030601
  2. PANTOPRAZOLE [Concomitant]
     Dosage: 40 mg, 2x/day
  3. LEVOTHYROXINE [Concomitant]
     Indication: TSH DECREASE
     Dosage: 150 ug, 1x/day
     Dates: start: 19740801
  4. LEVOTHYROXINE [Concomitant]
     Indication: PRIMARY HYPOTHYROIDISM
  5. HYDROCORTISONE [Concomitant]
     Indication: ACTH DECREASED
     Dosage: UNK
     Dates: start: 19740801
  6. SYSTEN [Concomitant]
     Indication: LUTEINISING HORMONE DEFICIENCY
     Dosage: UNK
     Dates: start: 19940601
  7. SYSTEN [Concomitant]
     Indication: FOLLICLE-STIMULATING HORMONE DEFICIENCY
  8. SYSTEN [Concomitant]
     Indication: HYPOGONADISM FEMALE
  9. NAPROXEN SODIUM [Concomitant]
     Indication: DYSMENORRHOEA
     Dosage: UNK
     Dates: start: 19960714

REACTIONS (1)
  - Liver disorder [Unknown]
